FAERS Safety Report 6143648-9 (Version None)
Quarter: 2009Q2

REPORT INFORMATION
  Report Type: 
  Country: None (occurrence: None)
  Receive Date: 20090403
  Receipt Date: 20090331
  Transmission Date: 20091009
  Serious: Yes (Life-Threatening, Hospitalization)
  Sender: FDA-Public Use
  Company Number: US-KINGPHARMUSA00001-K200900364

PATIENT
  Age: 73 Year
  Sex: Female

DRUGS (11)
  1. ALTACE [Interacting]
     Indication: PULMONARY HYPERTENSION
     Dosage: 10 MG, QD
     Route: 048
     Dates: start: 20070601
  2. AMILORIDE HCL AND HYDROCHLOROTHIAZIDE [Suspect]
     Indication: HYPERTENSION
     Dosage: UNK
     Route: 048
     Dates: end: 20090304
  3. CANDESARTAN [Interacting]
     Indication: PULMONARY HYPERTENSION
     Dosage: 8 MG, BID
     Route: 048
  4. ACETYLSALICYLIC ACID [Concomitant]
     Indication: ARTERIOSCLEROSIS CORONARY ARTERY
     Dosage: 100 MG, UNK
     Route: 048
  5. AMIODARONE HCL [Concomitant]
     Indication: TACHYARRHYTHMIA
     Dosage: 200 MG, UNK
     Route: 048
  6. AMLODIPINE BESYLATE [Concomitant]
     Indication: HYPERTENSION
     Dosage: 10 MG, UNK
     Route: 048
  7. ARELIX                             /00630801/ [Concomitant]
     Indication: HYPERTENSION
     Dosage: 3 MG, UNK
     Route: 048
  8. BISOPROLOL [Concomitant]
     Indication: HYPERTENSION
     Dosage: 5 MG, BID
     Route: 048
  9. FALICARD [Concomitant]
     Indication: HYPERTENSION
     Dosage: 80 MG, BID
     Route: 048
     Dates: start: 20000201
  10. FALITHROM [Concomitant]
     Indication: ATRIAL FIBRILLATION
     Dosage: UNK
     Route: 048
     Dates: start: 20000201
  11. PANTOZOL                           /01263202/ [Concomitant]
     Indication: PROPHYLAXIS AGAINST GASTROINTESTINAL ULCER
     Dosage: 40 MG, UNK
     Route: 048

REACTIONS (10)
  - ACUTE PRERENAL FAILURE [None]
  - ASTHENIA [None]
  - BLOOD CREATININE INCREASED [None]
  - BLOOD POTASSIUM INCREASED [None]
  - BLOOD UREA INCREASED [None]
  - DRUG INTERACTION [None]
  - FLUID RETENTION [None]
  - GENERAL PHYSICAL HEALTH DETERIORATION [None]
  - HYPONATRAEMIA [None]
  - WEIGHT DECREASED [None]
